FAERS Safety Report 6718296-X (Version None)
Quarter: 2010Q2

REPORT INFORMATION
  Report Type: 
  Country: None (occurrence: None)
  Receive Date: 20100505
  Receipt Date: 20100423
  Transmission Date: 20101027
  Serious: Yes (Hospitalization)
  Sender: FDA-Public Use
  Company Number: 010700

PATIENT
  Sex: Female
  Weight: 57.3 kg

DRUGS (4)
  1. LACOSAMIDE [Suspect]
     Indication: PARTIAL SEIZURES
     Dosage: (ORAL) ; (200 MG BID ORAL)
     Route: 048
     Dates: start: 20100421, end: 20100421
  2. LAMOTRIGINE [Concomitant]
  3. PREGABALIN [Concomitant]
  4. AMOXICILLIN [Concomitant]

REACTIONS (6)
  - CONDITION AGGRAVATED [None]
  - CONVULSION [None]
  - DIZZINESS [None]
  - NERVOUSNESS [None]
  - TONSILLITIS [None]
  - TREMOR [None]
